FAERS Safety Report 4736920-8 (Version None)
Quarter: 2005Q3

REPORT INFORMATION
  Report Type: 
  Country: None (occurrence: None)
  Receive Date: 20050808
  Receipt Date: 20050421
  Transmission Date: 20060218
  Serious: Yes (Hospitalization)
  Sender: FDA-Public Use
  Company Number: US-ROCHE-402590

PATIENT
  Age: 58 Year
  Sex: Male
  Weight: 86.6 kg

DRUGS (21)
  1. RIBAVIRIN [Suspect]
     Route: 048
     Dates: start: 20050311, end: 20050412
  2. RIBAVIRIN [Suspect]
     Route: 048
     Dates: start: 20050414
  3. RIBAVIRIN [Suspect]
     Route: 048
     Dates: end: 20050709
  4. PEG-INTERFERON ALFA 2A (RO 25-8310) [Suspect]
     Route: 058
     Dates: start: 20050311, end: 20050708
  5. ALLOPURINOL [Concomitant]
     Dates: start: 20050321
  6. AMITRIPTYLINE HCL [Concomitant]
     Dates: start: 19890401
  7. ASPIRIN [Concomitant]
     Dates: start: 19990205
  8. ATENOLOL [Concomitant]
     Dates: start: 20020101
  9. BUPROPION HCL [Concomitant]
     Dates: start: 19980731
  10. CLONIDINE [Concomitant]
     Dates: start: 19940615
  11. DOCUSATE NA [Concomitant]
     Dates: start: 20050408
  12. EPOETIN ALFA [Concomitant]
     Dates: start: 20050401
  13. FOSINOPRIL SODIUM [Concomitant]
     Dates: start: 19890401
  14. FUROSEMIDE [Concomitant]
     Dates: start: 19960520
  15. NPH INSULIN [Concomitant]
     Dates: start: 19940702
  16. REGULAR INSULIN [Concomitant]
     Dates: start: 19940608
  17. METOCLOPRAMIDE HCL [Concomitant]
     Dates: start: 20050408
  18. OMEPRAZOLE [Concomitant]
     Dates: start: 20050407
  19. PENTOXIFYLLINE [Concomitant]
     Dates: start: 19940615
  20. PSYLLIUM [Concomitant]
     Dates: start: 20050408
  21. GEMFIBROZIL [Concomitant]
     Dates: start: 20050601

REACTIONS (8)
  - ANAEMIA [None]
  - BLOOD GLUCOSE INCREASED [None]
  - DIZZINESS [None]
  - HYPOTENSION [None]
  - OCCULT BLOOD POSITIVE [None]
  - PANCREATITIS ACUTE [None]
  - VARICES OESOPHAGEAL [None]
  - VISION BLURRED [None]
